FAERS Safety Report 10076605 (Version 1)
Quarter: 2014Q2

REPORT INFORMATION
  Report Type: Spontaneous
  Country: US (occurrence: None)
  Receive Date: 20140411
  Receipt Date: 20140411
  Transmission Date: 20141212
  Serious: Yes (Life-Threatening, Hospitalization, Disabling, Other)
  Sender: FDA-Public Use
  Company Number: None

PATIENT
  Age: 24 Year
  Sex: Female
  Weight: 79.38 kg

DRUGS (1)
  1. NUVARING [Suspect]
     Indication: CONTRACEPTION
     Dosage: 1 EVERY 28 DAYS INVAGINAL AREA?MONTHLY?
     Route: 067
     Dates: start: 20040601, end: 20140410

REACTIONS (6)
  - Palpitations [None]
  - Chest pain [None]
  - Contusion [None]
  - Contusion [None]
  - Stress [None]
  - Colon cancer [None]
